FAERS Safety Report 4781349-X (Version None)
Quarter: 2005Q3

REPORT INFORMATION
  Report Type: 
  Country: None (occurrence: None)
  Receive Date: 20050928
  Receipt Date: 20050919
  Transmission Date: 20060218
  Serious: Yes (Other)
  Sender: FDA-Public Use
  Company Number: 2005GB01830

PATIENT
  Age: 75 Year
  Sex: Male

DRUGS (3)
  1. CASODEX [Suspect]
     Route: 048
     Dates: start: 20050616
  2. WARFARIN SODIUM [Suspect]
     Indication: ATRIAL FIBRILLATION
     Route: 048
  3. WARFARIN SODIUM [Suspect]
     Route: 048

REACTIONS (1)
  - INTERNATIONAL NORMALISED RATIO INCREASED [None]
